FAERS Safety Report 4607074-3 (Version None)
Quarter: 2005Q1

REPORT INFORMATION
  Report Type: 
  Country: None (occurrence: None)
  Receive Date: 20050314
  Receipt Date: 20050307
  Transmission Date: 20050727
  Serious: Yes (Other)
  Sender: FDA-Public Use
  Company Number: FR-BRISTOL-MYERS SQUIBB COMPANY-12888764

PATIENT
  Age: 7 Year
  Sex: Male

DRUGS (7)
  1. CYCLOPHOSPHAMIDE [Suspect]
     Indication: BURKITT'S LYMPHOMA
  2. DOXORUBICIN HCL [Suspect]
     Indication: BURKITT'S LYMPHOMA
  3. METHOTREXATE [Suspect]
     Indication: BURKITT'S LYMPHOMA
  4. VINCRISTINE [Suspect]
     Indication: BURKITT'S LYMPHOMA
  5. PREDNISOLONE [Suspect]
     Indication: BURKITT'S LYMPHOMA
  6. CYTARABINE [Suspect]
     Indication: BURKITT'S LYMPHOMA
  7. HYDROCORTISONE [Suspect]
     Indication: BURKITT'S LYMPHOMA

REACTIONS (1)
  - PORTAL VEIN THROMBOSIS [None]
